FAERS Safety Report 20589892 (Version 1)
Quarter: 2022Q1

REPORT INFORMATION
  Report Type: Spontaneous
  Country: US (occurrence: None)
  Receive Date: 20220311
  Receipt Date: 20220311
  Transmission Date: 20220423
  Serious: No
  Sender: FDA-Public Use
  Company Number: None

PATIENT
  Age: 78 Year
  Sex: Female

DRUGS (1)
  1. DIFLUPREDNATE [Suspect]
     Active Substance: DIFLUPREDNATE
     Route: 047
     Dates: start: 20220201, end: 20220301

REACTIONS (2)
  - Vision blurred [None]
  - Blindness [None]

NARRATIVE: CASE EVENT DATE: 20220301
